FAERS Safety Report 12394098 (Version 1)
Quarter: 2016Q2

REPORT INFORMATION
  Report Type: Spontaneous
  Country: US (occurrence: US)
  Receive Date: 20160523
  Receipt Date: 20160523
  Transmission Date: 20160815
  Serious: Yes (Other)
  Sender: FDA-Public Use
  Company Number: US-PFIZER INC-2015309122

PATIENT
  Age: 53 Year
  Sex: Male
  Weight: 113 kg

DRUGS (2)
  1. CEFAZOLIN [Suspect]
     Active Substance: CEFAZOLIN
     Indication: LOCALISED INFECTION
     Dosage: 50 ML, 3X/DAY (EVERY 8 HOURS VIA IV PUMP FOR 5 DAYS)
     Route: 042
     Dates: start: 20150101, end: 20150913
  2. CEFOXINE [Suspect]
     Active Substance: CEFOTAXIME SODIUM
     Indication: LOCALISED INFECTION
     Dosage: UNK
     Dates: start: 2015, end: 2015

REACTIONS (13)
  - Drug withdrawal syndrome [Not Recovered/Not Resolved]
  - Myalgia [Not Recovered/Not Resolved]
  - Infusion site irritation [Unknown]
  - Tendon pain [Not Recovered/Not Resolved]
  - Chest pain [Recovered/Resolved]
  - Angina pectoris [Recovering/Resolving]
  - Pain in extremity [Not Recovered/Not Resolved]
  - Tremor [Recovering/Resolving]
  - Influenza like illness [Unknown]
  - Arthralgia [Not Recovered/Not Resolved]
  - Back pain [Not Recovered/Not Resolved]
  - Hypoaesthesia [Recovering/Resolving]
  - Blood pressure increased [Recovered/Resolved]

NARRATIVE: CASE EVENT DATE: 20150913
